FAERS Safety Report 8824656 (Version 2)
Quarter: 2013Q2

REPORT INFORMATION
  Report Type: Report from Study
  Country: BR (occurrence: BR)
  Receive Date: 20121004
  Receipt Date: 20130513
  Transmission Date: 20140414
  Serious: Yes (Other)
  Sender: FDA-Public Use
  Company Number: PHHY2012BR086199

PATIENT
  Sex: Female

DRUGS (3)
  1. DIOVAN [Suspect]
     Indication: HYPERTENSION
     Dosage: 1 DF, IN THE MORNING
     Route: 048
     Dates: start: 201210
  2. CORTICOSTEROIDS [Concomitant]
     Indication: LICHEN PLANUS
     Dosage: UNK UKN, UNK
  3. FLUOXETINE [Concomitant]
     Indication: LICHEN PLANUS
     Dosage: UNK UKN, UNK

REACTIONS (2)
  - Diabetes mellitus [Recovering/Resolving]
  - Uterine polyp [Unknown]
